FAERS Safety Report 13578051 (Version 2)
Quarter: 2017Q2

REPORT INFORMATION
  Report Type: Report from Study
  Country: US (occurrence: US)
  Receive Date: 20170524
  Receipt Date: 20170620
  Transmission Date: 20170830
  Serious: Yes (Hospitalization)
  Sender: FDA-Public Use
  Company Number: US-IPSEN BIOSCIENCE, INC.-MER-2017-000121

PATIENT

DRUGS (31)
  1. FERUMOXYTOL [Suspect]
     Active Substance: FERUMOXYTOL
     Indication: PRODUCT USED FOR UNKNOWN INDICATION
     Dosage: UNK, C1D1
     Route: 065
     Dates: start: 20160719, end: 20170501
  2. CALCIUM CARBONATE. [Concomitant]
     Active Substance: CALCIUM CARBONATE
     Indication: PRODUCT USED FOR UNKNOWN INDICATION
     Dosage: 600 MG, UNK
     Route: 048
  3. MM-398 [Suspect]
     Active Substance: IRINOTECAN HYDROCHLORIDE
     Indication: NEOPLASM
     Dosage: 60 MG/M2, Q2WK
     Route: 042
     Dates: start: 20160725, end: 20170501
  4. FERUMOXYTOL [Suspect]
     Active Substance: FERUMOXYTOL
     Dosage: UNK, C9D15
     Route: 065
     Dates: start: 20170403, end: 20170403
  5. FERUMOXYTOL [Suspect]
     Active Substance: FERUMOXYTOL
     Dosage: UNK, C10D1
     Route: 065
     Dates: start: 20170417, end: 20170417
  6. VITAMIN D3 [Concomitant]
     Active Substance: CHOLECALCIFEROL
     Indication: PRODUCT USED FOR UNKNOWN INDICATION
     Dosage: 5000 UNIT, UNK
     Route: 048
  7. ZOFRAN [Concomitant]
     Active Substance: ONDANSETRON HYDROCHLORIDE
     Indication: PROPHYLAXIS OF NAUSEA AND VOMITING
     Dosage: 4-8 MG BY MOUTH EVERY 8 (EIGHT) HOURS AS NEEDED
     Route: 048
  8. PHENERGAN [Concomitant]
     Active Substance: PROMETHAZINE HYDROCHLORIDE
     Indication: NAUSEA
     Dosage: 25 MG, PRN
     Route: 048
  9. FERUMOXYTOL [Suspect]
     Active Substance: FERUMOXYTOL
     Dosage: UNK, C8D15
     Route: 065
     Dates: start: 20170206, end: 20170206
  10. FULVESTRANT [Concomitant]
     Active Substance: FULVESTRANT
     Indication: PRODUCT USED FOR UNKNOWN INDICATION
     Dosage: 2 INJECTIONS IN BUTTOCKS EVERY 4 WEEKS
     Route: 030
  11. LETROZOLE. [Concomitant]
     Active Substance: LETROZOLE
     Indication: PRODUCT USED FOR UNKNOWN INDICATION
     Dosage: 2.5 MG, QD
     Route: 048
  12. EMLA [Concomitant]
     Active Substance: LIDOCAINE\PRILOCAINE
     Indication: PRODUCT USED FOR UNKNOWN INDICATION
     Dosage: UNK
     Route: 061
  13. SODIUM CHLORIDE. [Concomitant]
     Active Substance: SODIUM CHLORIDE
     Indication: PRODUCT USED FOR UNKNOWN INDICATION
     Dosage: 0.9% 0.9 % SYRG WITH METHOTREXATE (PF) 25 MG/ML SOLN BY INTRATHECAL ROUTE ONCE.
     Route: 037
  14. ULTRACET [Concomitant]
     Active Substance: ACETAMINOPHEN\TRAMADOL HYDROCHLORIDE
     Indication: PRODUCT USED FOR UNKNOWN INDICATION
     Dosage: 1 TAB, Q6H
     Route: 048
  15. FERUMOXYTOL [Suspect]
     Active Substance: FERUMOXYTOL
     Dosage: UNK, C10D15
     Route: 065
     Dates: start: 20170501, end: 20170501
  16. LOMOTIL [Concomitant]
     Active Substance: ATROPINE SULFATE\DIPHENOXYLATE HYDROCHLORIDE
     Indication: PRODUCT USED FOR UNKNOWN INDICATION
     Dosage: 2.5-0.025 MG PER TABLET TAKE 1 TABLET BY MOUTH
     Route: 048
  17. MULTIVITAMIN                       /00097801/ [Concomitant]
     Active Substance: VITAMINS
     Indication: PRODUCT USED FOR UNKNOWN INDICATION
     Dosage: 1 TAB, ORAL, DAILY
     Route: 048
  18. POTASSIUM CHLORIDE. [Concomitant]
     Active Substance: POTASSIUM CHLORIDE
     Indication: PRODUCT USED FOR UNKNOWN INDICATION
     Dosage: 20 MEQ, QD
     Route: 048
  19. FERUMOXYTOL [Suspect]
     Active Substance: FERUMOXYTOL
     Dosage: UNK, C5D15
     Route: 065
     Dates: start: 20161212, end: 20161212
  20. FERUMOXYTOL [Suspect]
     Active Substance: FERUMOXYTOL
     Dosage: UNK, C6D15
     Route: 065
     Dates: start: 20170109, end: 20170109
  21. FERUMOXYTOL [Suspect]
     Active Substance: FERUMOXYTOL
     Dosage: UNK, C1D8
     Route: 065
     Dates: start: 20160801, end: 20160801
  22. FERUMOXYTOL [Suspect]
     Active Substance: FERUMOXYTOL
     Dosage: UNK, C2D1,
     Route: 065
     Dates: start: 20160906, end: 20160906
  23. ZYRTEC [Concomitant]
     Active Substance: CETIRIZINE HYDROCHLORIDE
     Indication: PRODUCT USED FOR UNKNOWN INDICATION
     Dosage: 10 MG, QD
     Route: 048
  24. MARINOL                            /00003301/ [Concomitant]
     Indication: PROPHYLAXIS OF NAUSEA AND VOMITING
     Dosage: 2.5 MG BY MOUTH 2 (TWO) TIMES A DAY AS NEEDED
     Route: 048
  25. LUNESTA [Concomitant]
     Active Substance: ESZOPICLONE
     Indication: PRODUCT USED FOR UNKNOWN INDICATION
     Dosage: 3 MG BY MOUTH NIGHTLY AT BEDTIME
     Route: 048
  26. LACTOBAC                           /00079701/ [Concomitant]
     Indication: PRODUCT USED FOR UNKNOWN INDICATION
     Dosage: 1 PACKET BY MOUTH DAILY
     Route: 048
  27. VALTREX [Concomitant]
     Active Substance: VALACYCLOVIR HYDROCHLORIDE
     Indication: PRODUCT USED FOR UNKNOWN INDICATION
     Dosage: 500 MG, BID
     Route: 048
  28. ASTELIN                            /00884002/ [Concomitant]
     Indication: PRODUCT USED FOR UNKNOWN INDICATION
     Dosage: 137 MCG (0.1 %) NASAL SPRAY 2 SPRAYS BY NASAL ROUTE 2 (TWO) TIMES A DAY AS
  29. EPIPEN [Concomitant]
     Active Substance: EPINEPHRINE
     Indication: ANAPHYLACTIC REACTION
     Dosage: 0.3 MG/0.3 ML ATIN INJECTION INJECT 0.3 ML (0.3 MG TOTAL) INTO THE MUSCLE ONCE AS NEEDED
     Route: 030
  30. ALLEGRA [Concomitant]
     Active Substance: FEXOFENADINE HYDROCHLORIDE
     Indication: PRODUCT USED FOR UNKNOWN INDICATION
     Dosage: 180 MG, UNK
     Route: 048
  31. FLONASE [Concomitant]
     Active Substance: FLUTICASONE PROPIONATE
     Indication: PRODUCT USED FOR UNKNOWN INDICATION
     Dosage: 50 MCG/ACTUATION NASAL SPRAY 2 SPRAYS INTO EACH NOSTRIL DAILY AS NEEDED

REACTIONS (1)
  - Urinary tract infection [Not Recovered/Not Resolved]

NARRATIVE: CASE EVENT DATE: 20170510
